FAERS Safety Report 5328955-1 (Version None)
Quarter: 2007Q2

REPORT INFORMATION
  Report Type: 
  Country: None (occurrence: None)
  Receive Date: 20070518
  Receipt Date: 20070509
  Transmission Date: 20071010
  Serious: Yes (Death)
  Sender: FDA-Public Use
  Company Number: JP-SANOFI-SYNTHELABO-A01200704143

PATIENT
  Age: 77 Year
  Sex: Female
  Weight: 27.1 kg

DRUGS (13)
  1. AMARYL [Suspect]
     Dosage: 3 MG
     Route: 048
     Dates: start: 20070320, end: 20070321
  2. AMARYL [Suspect]
     Dosage: 4 MG
     Route: 048
     Dates: start: 20070322, end: 20070322
  3. AMARYL [Suspect]
     Dosage: UNK
     Route: 048
     Dates: start: 20070323, end: 20070324
  4. INNOLET [Concomitant]
     Indication: DRUG USE FOR UNKNOWN INDICATION
     Dosage: 10 IU
     Route: 058
     Dates: end: 20070319
  5. ASASION [Concomitant]
     Indication: INSOMNIA
     Dosage: 0.125 MG
     Route: 048
     Dates: start: 20070215, end: 20070324
  6. SENNOSIDE [Concomitant]
     Indication: CONSTIPATION
     Dosage: 24 MG
     Route: 048
     Dates: start: 20070115, end: 20070324
  7. NITROUS [Concomitant]
     Indication: CARDIAC FAILURE CHRONIC
     Dosage: 40 MG
     Route: 048
     Dates: start: 20061120, end: 20070324
  8. PIROLACTONE [Concomitant]
     Indication: CARDIAC FAILURE CHRONIC
     Dosage: 25 MG
     Route: 048
     Dates: start: 20061106, end: 20070324
  9. THYRADIN [Concomitant]
     Indication: HYPOTHYROIDISM
     Dosage: 50 MCG
     Route: 048
     Dates: end: 20070324
  10. MYSLEE [Suspect]
     Indication: INSOMNIA
     Dosage: UNK
     Route: 048
     Dates: end: 20061101
  11. MYSLEE [Suspect]
     Dosage: 15 MG
     Route: 048
     Dates: start: 20061208, end: 20070324
  12. PELEX [Concomitant]
     Dosage: 9 MG
     Route: 048
     Dates: start: 20070322, end: 20070324
  13. PELEX [Concomitant]
     Indication: NASAL CONGESTION
     Dosage: 9 MG
     Route: 048
     Dates: start: 20070322, end: 20070324

REACTIONS (6)
  - ASTHENIA [None]
  - COMA [None]
  - DRUG ABUSER [None]
  - HEPATITIS FULMINANT [None]
  - PRURITUS [None]
  - PURPURA [None]
